FAERS Safety Report 7863193-X (Version None)
Quarter: 2011Q4

REPORT INFORMATION
  Report Type: 
  Country: None (occurrence: None)
  Receive Date: 20111027
  Receipt Date: 20101129
  Transmission Date: 20120403
  Serious: No
  Sender: FDA-Public Use
  Company Number: US-AMGEN-USASP2010006940

PATIENT
  Sex: Female

DRUGS (6)
  1. LISINOPRIL [Concomitant]
  2. ENBREL [Suspect]
     Indication: RHEUMATOID ARTHRITIS
     Dosage: 50 MG, QWK
     Dates: start: 20091201
  3. VIACTIV                            /00751501/ [Concomitant]
  4. PREMARIN [Concomitant]
  5. SIMVASTATIN [Concomitant]
  6. PREDNISONE [Concomitant]

REACTIONS (4)
  - TENDERNESS [None]
  - ERYTHEMA [None]
  - SKIN WARM [None]
  - PRURITUS [None]
